FAERS Safety Report 26041041 (Version 1)
Quarter: 2025Q4

REPORT INFORMATION
  Report Type: Spontaneous
  Country: US (occurrence: None)
  Receive Date: 20251112
  Receipt Date: 20251112
  Transmission Date: 20260118
  Serious: Yes (Other)
  Sender: FDA-CTU
  Company Number: None

PATIENT
  Age: 69 Year
  Sex: Male
  Weight: 87.75 kg

DRUGS (2)
  1. KISUNLA [Suspect]
     Active Substance: DONANEMAB-AZBT
     Indication: Dementia Alzheimer^s type
     Dosage: OTHER FREQUENCY : Q4W;?
     Route: 042
     Dates: start: 20250714, end: 20251013
  2. KISUNLA [Concomitant]
     Active Substance: DONANEMAB-AZBT
     Dates: start: 20250714

REACTIONS (2)
  - Magnetic resonance imaging abnormal [None]
  - Therapy interrupted [None]

NARRATIVE: CASE EVENT DATE: 20251006
